FAERS Safety Report 24236989 (Version 1)
Quarter: 2024Q3

REPORT INFORMATION
  Report Type: Spontaneous
  Country: US (occurrence: US)
  Receive Date: 20240822
  Receipt Date: 20240822
  Transmission Date: 20241016
  Serious: Yes (Hospitalization)
  Sender: MAYNE
  Company Number: US-MAYNE PHARMA-2024MYN000349

PATIENT

DRUGS (1)
  1. DORYX [Suspect]
     Active Substance: DOXYCYCLINE HYCLATE
     Indication: Prurigo
     Dosage: UNK
     Route: 065

REACTIONS (1)
  - Skin reaction [Unknown]
